FAERS Safety Report 13099418 (Version 1)
Quarter: 2017Q1

REPORT INFORMATION
  Report Type: Spontaneous
  Country: JP (occurrence: JP)
  Receive Date: 20170109
  Receipt Date: 20170109
  Transmission Date: 20170428
  Serious: Yes (Other)
  Sender: FDA-Public Use
  Company Number: JP-MYLANLABS-2017M1000733

PATIENT

DRUGS (2)
  1. ASPIRIN                            /00002701/ [Concomitant]
     Active Substance: ASPIRIN
     Indication: CHEST DISCOMFORT
     Dosage: LOW DOSE ASPIRIN
     Route: 065
  2. ATENOLOL. [Suspect]
     Active Substance: ATENOLOL
     Indication: CHEST DISCOMFORT
     Route: 048

REACTIONS (4)
  - Ventricular fibrillation [Recovered/Resolved]
  - Arteriospasm coronary [Recovered/Resolved]
  - Cardio-respiratory arrest [Recovered/Resolved]
  - Cardiac arrest [Recovered/Resolved]
